FAERS Safety Report 4560883-1 (Version None)
Quarter: 2005Q1

REPORT INFORMATION
  Report Type: 
  Country: None (occurrence: None)
  Receive Date: 20050121
  Receipt Date: 20050112
  Transmission Date: 20050727
  Serious: Yes (Other)
  Sender: FDA-Public Use
  Company Number: 2002-09-0608

PATIENT
  Age: 48 Year
  Sex: Female

DRUGS (4)
  1. PEG-INTRON [Suspect]
     Indication: HEPATITIS C
     Dosage: 150 MCG QWK SUBCUTANEOUS
     Route: 058
     Dates: start: 20011130, end: 20030101
  2. REBETOL [Suspect]
     Indication: HEPATITIS C
     Dosage: 800 MG QD ORAL
     Route: 048
     Dates: start: 20011130, end: 20030101
  3. AMBIEN [Concomitant]
  4. CIPROFLOXACIN HCL [Concomitant]

REACTIONS (5)
  - AMENORRHOEA [None]
  - FOOT FRACTURE [None]
  - LOWER LIMB FRACTURE [None]
  - MULTIPLE FRACTURES [None]
  - OSTEOPOROSIS [None]
